FAERS Safety Report 15864600 (Version 1)
Quarter: 2019Q1

REPORT INFORMATION
  Report Type: Report from Study
  Country: US (occurrence: US)
  Receive Date: 20190124
  Receipt Date: 20190124
  Transmission Date: 20190417
  Serious: Yes (Other)
  Sender: FDA-Public Use
  Company Number: PHEH2019US003096

PATIENT
  Age: 34 Year
  Sex: Male
  Weight: 70.3 kg

DRUGS (1)
  1. EXTAVIA [Suspect]
     Active Substance: INTERFERON BETA-1B
     Indication: MULTIPLE SCLEROSIS
     Dosage: 0.3 MG, Q48H
     Route: 058
     Dates: start: 20170404

REACTIONS (4)
  - Malaise [Not Recovered/Not Resolved]
  - Influenza [Not Recovered/Not Resolved]
  - Asthenia [Not Recovered/Not Resolved]
  - Confusional state [Not Recovered/Not Resolved]

NARRATIVE: CASE EVENT DATE: 201805
